FAERS Safety Report 4301440-1 (Version None)
Quarter: 2004Q1

REPORT INFORMATION
  Report Type: 
  Country: None (occurrence: None)
  Receive Date: 20040220
  Receipt Date: 20040220
  Transmission Date: 20041129
  Serious: No
  Sender: FDA-Public Use
  Company Number: None

PATIENT
  Age: 52 Year
  Sex: Female
  Weight: 117.4816 kg

DRUGS (4)
  1. TIKOSYN [Suspect]
     Indication: ATRIAL FIBRILLATION
     Dosage: 500 MG BID PO
     Route: 048
     Dates: start: 20040210, end: 20040212
  2. TIKOSYN [Suspect]
     Indication: SUPRAVENTRICULAR TACHYCARDIA
     Dosage: 500 MG BID PO
     Route: 048
     Dates: start: 20040210, end: 20040212
  3. TIKOSYN [Suspect]
     Indication: ATRIAL FIBRILLATION
     Dosage: 500 MG BID PO
     Route: 048
     Dates: start: 20040212
  4. TIKOSYN [Suspect]
     Indication: SUPRAVENTRICULAR TACHYCARDIA
     Dosage: 500 MG BID PO
     Route: 048
     Dates: start: 20040212

REACTIONS (1)
  - ELECTROCARDIOGRAM QT CORRECTED INTERVAL PROLONGED [None]
